FAERS Safety Report 4459652-2 (Version None)
Quarter: 2004Q3

REPORT INFORMATION
  Report Type: 
  Country: None (occurrence: None)
  Receive Date: 20040914
  Receipt Date: 20040813
  Transmission Date: 20050211
  Serious: Yes (Hospitalization, Other)
  Sender: FDA-Public Use
  Company Number: US-JNJFOC-20040608014

PATIENT
  Sex: Female

DRUGS (2)
  1. ULTRACET [Suspect]
     Dosage: 2 DOSE(S),  IN 4 HOUR
  2. ZOLOFT [Concomitant]

REACTIONS (1)
  - CONVULSION [None]
